FAERS Safety Report 18327536 (Version 1)
Quarter: 2020Q3

REPORT INFORMATION
  Report Type: Spontaneous
  Country: CN (occurrence: CN)
  Receive Date: 20200929
  Receipt Date: 20200929
  Transmission Date: 20201103
  Serious: Yes (Other)
  Sender: FDA-Public Use
  Company Number: CN-PFIZER INC-2020373112

PATIENT
  Age: 64 Year
  Sex: Male
  Weight: 40 kg

DRUGS (4)
  1. CELECOXIB. [Suspect]
     Active Substance: CELECOXIB
     Indication: ANALGESIC THERAPY
     Dosage: 0.2 G, 1X/DAY
     Route: 048
     Dates: start: 20200909, end: 20200913
  2. LORNOXICAM [Suspect]
     Active Substance: LORNOXICAM
     Indication: ANALGESIC THERAPY
     Dosage: 16 MG, 1X/DAY
     Route: 041
     Dates: start: 20200909, end: 20200913
  3. COLCHICINE. [Suspect]
     Active Substance: COLCHICINE
     Indication: GOUT
     Dosage: 0.5 MG, 12X/DAY
     Route: 048
     Dates: start: 20200910, end: 20200910
  4. SODIUM CHLORIDE. [Concomitant]
     Active Substance: SODIUM CHLORIDE
     Indication: VEHICLE SOLUTION USE
     Dosage: 100 ML, 1X/DAY
     Route: 041
     Dates: start: 20200909, end: 20200913

REACTIONS (3)
  - Melaena [Recovering/Resolving]
  - Asthenia [Recovering/Resolving]
  - Anaemia [Recovering/Resolving]

NARRATIVE: CASE EVENT DATE: 20200913
